FAERS Safety Report 22787171 (Version 3)
Quarter: 2023Q4

REPORT INFORMATION
  Report Type: Spontaneous
  Country: US (occurrence: US)
  Receive Date: 20230804
  Receipt Date: 20231219
  Transmission Date: 20240110
  Serious: Yes (Hospitalization, Other)
  Sender: FDA-Public Use
  Company Number: US-009507513-2307USA013413

PATIENT
  Age: 68 Year
  Sex: Female

DRUGS (1)
  1. KEYTRUDA [Suspect]
     Active Substance: PEMBROLIZUMAB
     Indication: Anal cancer
     Dosage: 200 MILLIGRAM, Q3W
     Route: 042
     Dates: start: 202209, end: 202304

REACTIONS (12)
  - Encephalitis [Recovering/Resolving]
  - Malignant neoplasm progression [Unknown]
  - Adverse event [Unknown]
  - Fall [Not Recovered/Not Resolved]
  - Gait disturbance [Unknown]
  - Tooth fracture [Not Recovered/Not Resolved]
  - Ill-defined disorder [Not Recovered/Not Resolved]
  - Cerebral disorder [Not Recovered/Not Resolved]
  - Pain [Not Recovered/Not Resolved]
  - Dry skin [Not Recovered/Not Resolved]
  - Dizziness [Not Recovered/Not Resolved]
  - Rash [Not Recovered/Not Resolved]

NARRATIVE: CASE EVENT DATE: 20230101
